FAERS Safety Report 20904180 (Version 1)
Quarter: 2022Q2

REPORT INFORMATION
  Report Type: Spontaneous
  Country: RU (occurrence: RU)
  Receive Date: 20220602
  Receipt Date: 20220602
  Transmission Date: 20220720
  Serious: Yes (Other)
  Sender: FDA-Public Use
  Company Number: RU-LUPIN PHARMACEUTICALS INC.-2022-07904

PATIENT
  Age: 16 Year
  Sex: Male

DRUGS (5)
  1. DOXYCYCLINE [Suspect]
     Active Substance: DOXYCYCLINE
     Indication: Acne
     Dosage: UNK
     Route: 065
  2. ADAPALENE AND BENZOYL PEROXIDE [Suspect]
     Active Substance: ADAPALENE\BENZOYL PEROXIDE
     Indication: Acne
     Dosage: UNK
     Route: 065
  3. ISOTRETINOIN [Concomitant]
     Active Substance: ISOTRETINOIN
     Indication: Acne fulminans
     Dosage: 16 MG
     Route: 065
  4. ISOTRETINOIN [Concomitant]
     Active Substance: ISOTRETINOIN
     Dosage: 32 MG, QD
     Route: 065
  5. ISOTRETINOIN [Concomitant]
     Active Substance: ISOTRETINOIN
     Dosage: 48 MG, QD
     Route: 065

REACTIONS (1)
  - Drug ineffective [Unknown]
